FAERS Safety Report 17916980 (Version 7)
Quarter: 2021Q2

REPORT INFORMATION
  Report Type: Report from Study
  Country: US (occurrence: US)
  Receive Date: 20200619
  Receipt Date: 20210625
  Transmission Date: 20210717
  Serious: Yes (Hospitalization)
  Sender: FDA-Public Use
  Company Number: NVSC2020US172266

PATIENT
  Age: 75 Year
  Sex: Female

DRUGS (1)
  1. ENTRESTO [Suspect]
     Active Substance: SACUBITRIL\VALSARTAN
     Indication: CARDIAC FAILURE
     Dosage: 24.26 MG, BID
     Route: 048
     Dates: start: 20200612

REACTIONS (10)
  - Cough [Unknown]
  - Joint swelling [Unknown]
  - Asthma [Unknown]
  - Malaise [Unknown]
  - Cardiac disorder [Unknown]
  - Hypersensitivity [Unknown]
  - Frequent bowel movements [Unknown]
  - Dizziness [Unknown]
  - Arthralgia [Unknown]
  - Dyspnoea [Unknown]

NARRATIVE: CASE EVENT DATE: 20200625
